FAERS Safety Report 9919753 (Version 1)
Quarter: 2014Q1

REPORT INFORMATION
  Report Type: Spontaneous
  Country: CA (occurrence: CA)
  Receive Date: 20140224
  Receipt Date: 20140224
  Transmission Date: 20141002
  Serious: Yes (Other)
  Sender: FDA-Public Use
  Company Number: CA-GLAXOSMITHKLINE-A1061805A

PATIENT
  Age: 39 Year
  Sex: Female

DRUGS (10)
  1. ZOFRAN [Suspect]
     Indication: PRODUCT USED FOR UNKNOWN INDICATION
     Dosage: 4MG THREE TIMES PER DAY
     Route: 042
  2. FOLIC ACID [Concomitant]
  3. FRAGMIN [Concomitant]
     Route: 042
  4. HYDROMORPHONE [Concomitant]
  5. LAXATIVE [Concomitant]
     Route: 048
  6. NYSTATIN [Concomitant]
  7. PREDNISONE [Concomitant]
  8. RABEPRAZOLE [Concomitant]
  9. SENOKOT S [Concomitant]
  10. ZOPICLONE [Concomitant]

REACTIONS (2)
  - Joint crepitation [Recovered/Resolved]
  - Trismus [Recovered/Resolved]
